FAERS Safety Report 13080279 (Version 1)
Quarter: 2017Q1

REPORT INFORMATION
  Report Type: Spontaneous
  Country: FR (occurrence: FR)
  Receive Date: 20170103
  Receipt Date: 20170103
  Transmission Date: 20170428
  Serious: Yes (Hospitalization, Other)
  Sender: FDA-Public Use
  Company Number: FR-PFIZER INC-2016597822

PATIENT
  Age: 63 Year
  Sex: Female

DRUGS (3)
  1. OXALIPLATIN. [Suspect]
     Active Substance: OXALIPLATIN
     Indication: COLORECTAL CANCER
     Dosage: UNK UNK, CYCLIC
     Route: 042
     Dates: start: 20161125
  2. FLUOROURACIL ACCORD [Suspect]
     Active Substance: FLUOROURACIL
     Indication: COLORECTAL CANCER
     Dosage: UNK, CYCLIC
     Route: 042
     Dates: start: 20161125
  3. CALCIUM FOLINATE ZENTIVA [Suspect]
     Active Substance: LEUCOVORIN CALCIUM
     Indication: COLORECTAL CANCER
     Dosage: UNK UNK, CYCLIC
     Route: 042
     Dates: start: 20161125

REACTIONS (6)
  - Hypertrophic cardiomyopathy [Unknown]
  - Cardiac failure [Unknown]
  - Acidosis [Unknown]
  - Bundle branch block left [Unknown]
  - Acute pulmonary oedema [Recovered/Resolved]
  - Hypercapnia [Unknown]

NARRATIVE: CASE EVENT DATE: 201612
